FAERS Safety Report 14655073 (Version 2)
Quarter: 2020Q3

REPORT INFORMATION
  Report Type: Spontaneous
  Country: US (occurrence: US)
  Receive Date: 20180319
  Receipt Date: 20200803
  Transmission Date: 20201102
  Serious: Yes (Hospitalization, Other)
  Sender: FDA-Public Use
  Company Number: US-AUROBINDO-AUR-APL-2018-013870

PATIENT
  Age: 74 Year
  Sex: Female

DRUGS (23)
  1. LORAZEPAM. [Interacting]
     Active Substance: LORAZEPAM
     Indication: PRODUCT USED FOR UNKNOWN INDICATION
     Dosage: 0.5 MILLIGRAM, TWO TIMES A DAY AS NEEDED
     Route: 065
  2. OXYCODONE+ACETAMINOPHEN [Interacting]
     Active Substance: ACETAMINOPHEN\OXYCODONE HYDROCHLORIDE
     Indication: PRODUCT USED FOR UNKNOWN INDICATION
     Dosage: 5/325 MG, 3 TIMES A DAY AS NEEDED
     Route: 065
  3. CLONIDINE. [Interacting]
     Active Substance: CLONIDINE
     Indication: PAIN
     Dosage: APPLIED PERI?VAGINALLY
     Route: 061
  4. GABAPENTIN. [Interacting]
     Active Substance: GABAPENTIN
     Dosage: APPLIED PERI?VAGINALLY
     Route: 061
  5. RISPERIDONE. [Interacting]
     Active Substance: RISPERIDONE
     Indication: PRODUCT USED FOR UNKNOWN INDICATION
     Dosage: 0.5 MILLIGRAM, 3 TIMES A DAY AS NEEDED
     Route: 065
  6. KETOPROFEN. [Interacting]
     Active Substance: KETOPROFEN
     Indication: PAIN
     Dosage: APPLIED THE CREAM OVER HER UPPER BODY, ARMS, PERINEUM, AND VULVA
     Route: 061
  7. CALCIUM VITAMIN D [Interacting]
     Active Substance: CALCIUM\VITAMIN D
     Indication: PRODUCT USED FOR UNKNOWN INDICATION
     Dosage: 600/400 IU, TWO TIMES A DAY
     Route: 065
  8. DONEPEZIL. [Suspect]
     Active Substance: DONEPEZIL
     Indication: PRODUCT USED FOR UNKNOWN INDICATION
     Dosage: 10 MILLIGRAM, NIGHTLY
     Route: 065
  9. NAPROXEN. [Interacting]
     Active Substance: NAPROXEN
     Indication: PRODUCT USED FOR UNKNOWN INDICATION
     Dosage: 250 MILLIGRAM, TWO TIMES A DAY AS NEEDED
     Route: 065
  10. KETAMINE [Interacting]
     Active Substance: KETAMINE
     Indication: PAIN
     Dosage: APPLIED THE CREAM OVER HER UPPER BODY, ARMS, PERINEUM, AND VULVA ()
     Route: 061
  11. PREGABALIN. [Interacting]
     Active Substance: PREGABALIN
     Indication: PRODUCT USED FOR UNKNOWN INDICATION
     Dosage: 75 MILLIGRAM, ONCE A DAY, NIGHTLY
     Route: 065
  12. LORATADINE. [Interacting]
     Active Substance: LORATADINE
     Indication: PRODUCT USED FOR UNKNOWN INDICATION
     Dosage: 10 MILLIGRAM AS NECESSARY FOR ALLERGY SYMPTOMS
     Route: 065
  13. LIDOCAINE. [Interacting]
     Active Substance: LIDOCAINE
     Indication: PAIN
     Dosage: APPLIED THE CREAM OVER HER UPPER BODY, ARMS, PERINEUM, AND VULVA
     Route: 061
  14. LIOTHYRONINE [Interacting]
     Active Substance: LIOTHYRONINE
     Indication: PRODUCT USED FOR UNKNOWN INDICATION
     Dosage: 5 MICROGRAM, ONCE A DAY
     Route: 065
  15. LIDOCAINE. [Interacting]
     Active Substance: LIDOCAINE
     Dosage: APPLIED PERI?VAGINALLY
     Route: 061
  16. KETOPROFEN. [Interacting]
     Active Substance: KETOPROFEN
     Dosage: APPLIED PERI?VAGINALLY
     Route: 061
  17. LEVOTHYROXINE. [Interacting]
     Active Substance: LEVOTHYROXINE
     Indication: PRODUCT USED FOR UNKNOWN INDICATION
     Dosage: 225 MICROGRAM, EVERY WEEK IN DIVIDED DOSES
     Route: 065
  18. SERTRALINE [Interacting]
     Active Substance: SERTRALINE HYDROCHLORIDE
     Indication: PRODUCT USED FOR UNKNOWN INDICATION
     Dosage: 100 MILLIGRAM, ONCE A DAY
     Route: 065
  19. CLONIDINE. [Interacting]
     Active Substance: CLONIDINE
     Dosage: APPLIED THE CREAM OVER HER UPPER BODY, ARMS, PERINEUM, AND VULVA
     Route: 061
  20. KETAMINE [Interacting]
     Active Substance: KETAMINE
     Dosage: APPLIED PERI?VAGINALLY
     Route: 061
  21. ESTROGENS CONJUGATED [Interacting]
     Active Substance: ESTROGENS, CONJUGATED
     Indication: PRODUCT USED FOR UNKNOWN INDICATION
     Dosage: 0.625 MILLIGRAM/GRAM TWICE WEEKLY
     Route: 067
  22. OLOPATADINE HYDROCHLORIDE OPHTHALMIC SOLUTION USP 0.1 % [Interacting]
     Active Substance: OLOPATADINE HYDROCHLORIDE
     Indication: PRODUCT USED FOR UNKNOWN INDICATION
     Dosage: 1 GTT DROPS, TWO TIMES A DAY IN EACH EYE
     Route: 047
  23. GABAPENTIN. [Interacting]
     Active Substance: GABAPENTIN
     Indication: PAIN
     Dosage: APPLIED THE CREAM OVER HER UPPER BODY, ARMS, PERINEUM, AND VULVA
     Route: 061

REACTIONS (3)
  - Delirium [Recovered/Resolved]
  - Drug interaction [Unknown]
  - Toxicity to various agents [Unknown]
